FAERS Safety Report 6754505-9 (Version None)
Quarter: 2010Q2

REPORT INFORMATION
  Report Type: 
  Country: None (occurrence: None)
  Receive Date: 20100524
  Receipt Date: 20100317
  Transmission Date: 20101027
  Serious: No
  Sender: FDA-Public Use
  Company Number: 008952

PATIENT
  Sex: Male
  Weight: 79.4 kg

DRUGS (1)
  1. CIMZIA [Suspect]
     Indication: CROHN'S DISEASE
     Dosage: 400MG (200M FPS) SUBCUTANEOUS
     Route: 058
     Dates: start: 20100210

REACTIONS (2)
  - OROPHARYNGEAL PAIN [None]
  - WEIGHT INCREASED [None]
